FAERS Safety Report 9520979 (Version 1)
Quarter: 2013Q3

REPORT INFORMATION
  Report Type: Spontaneous
  Country: US (occurrence: US)
  Receive Date: 20130913
  Receipt Date: 20130913
  Transmission Date: 20140515
  Serious: No
  Sender: FDA-Public Use
  Company Number: US-PFIZER INC-2013263800

PATIENT
  Age: 80 Year
  Sex: Female
  Weight: 68 kg

DRUGS (3)
  1. XANAX [Suspect]
     Indication: SLEEP DISORDER
     Dosage: UNK
  2. ALPRAZOLAM [Suspect]
     Indication: SLEEP DISORDER
     Dosage: UNK
  3. ALPRAZOLAM [Suspect]
     Dosage: UNK

REACTIONS (6)
  - Off label use [Unknown]
  - Drug ineffective [Unknown]
  - Insomnia [Unknown]
  - Hangover [Unknown]
  - Somnolence [Unknown]
  - Fatigue [Unknown]
